FAERS Safety Report 23816766 (Version 3)
Quarter: 2024Q2

REPORT INFORMATION
  Report Type: Spontaneous
  Country: AT (occurrence: AT)
  Receive Date: 20240504
  Receipt Date: 20240523
  Transmission Date: 20240715
  Serious: Yes (Hospitalization)
  Sender: FDA-Public Use
  Company Number: AT-002147023-NVSC2024AT091572

PATIENT
  Age: 78 Year
  Sex: Male
  Weight: 58 kg

DRUGS (15)
  1. PLUVICTO [Suspect]
     Active Substance: LUTETIUM LU-177 VIPIVOTIDE TETRAXETAN
     Indication: Prostate cancer metastatic
     Dosage: UNK (EVERY 6 WEEKS)
     Route: 042
     Dates: start: 20230926
  2. PLUVICTO [Suspect]
     Active Substance: LUTETIUM LU-177 VIPIVOTIDE TETRAXETAN
     Dosage: UNK (EVERY 6 WEEKS)
     Route: 042
     Dates: start: 20231109
  3. PLUVICTO [Suspect]
     Active Substance: LUTETIUM LU-177 VIPIVOTIDE TETRAXETAN
     Dosage: UNK (EVERY 6 WEEKS)
     Route: 042
     Dates: start: 20231218
  4. PLUVICTO [Suspect]
     Active Substance: LUTETIUM LU-177 VIPIVOTIDE TETRAXETAN
     Dosage: UNK (EVERY 6 WEEKS)
     Route: 042
     Dates: start: 20240206
  5. MUCOBENE [Concomitant]
     Indication: Product used for unknown indication
     Dosage: 600 MG (1-0-0)
     Route: 048
  6. AMLODIPINE BESYLATE [Concomitant]
     Active Substance: AMLODIPINE BESYLATE
     Indication: Product used for unknown indication
     Dosage: 10 MG (1-0-0)
     Route: 048
  7. PANTOPRAZOLE SODIUM [Concomitant]
     Active Substance: PANTOPRAZOLE SODIUM
     Indication: Product used for unknown indication
     Dosage: 40 MG (1-0-0)
     Route: 048
  8. XTANDI [Concomitant]
     Active Substance: ENZALUTAMIDE
     Indication: Product used for unknown indication
     Dosage: 40 MG (2-0-0)
     Route: 048
  9. SERTRALINE HYDROCHLORIDE [Concomitant]
     Active Substance: SERTRALINE HYDROCHLORIDE
     Indication: Product used for unknown indication
     Dosage: 100 MG (1/2-0-0)
     Route: 048
  10. VITAMINS WITH MINERALS [Concomitant]
     Active Substance: MINERALS\VITAMINS
     Indication: Product used for unknown indication
     Dosage: UNK UNK, QD
     Route: 048
  11. ANORO ELLIPTA [Concomitant]
     Active Substance: UMECLIDINIUM BROMIDE\VILANTEROL TRIFENATATE
     Indication: Product used for unknown indication
     Dosage: UNK, QD (50 ?G/22 ?G) (POWDER FOR INHALATION)
     Route: 055
  12. CHOLECALCIFEROL [Concomitant]
     Active Substance: CHOLECALCIFEROL
     Indication: Product used for unknown indication
     Dosage: UNK (DROPS, 6-0-0)
     Route: 048
     Dates: end: 202309
  13. CHOLECALCIFEROL [Concomitant]
     Active Substance: CHOLECALCIFEROL
     Dosage: UNK (DROPS, 3-0-0)
     Route: 048
     Dates: start: 202309
  14. TRIPTORELIN PAMOATE [Concomitant]
     Active Substance: TRIPTORELIN PAMOATE
     Indication: Product used for unknown indication
     Dosage: 11.25 MG (EVERY 3 MONTHS)
     Route: 030
  15. NOVALGIN [Concomitant]
     Indication: Pain
     Dosage: 500 MG, PRN
     Route: 048

REACTIONS (4)
  - Cardiac disorder [Unknown]
  - Coronary artery disease [Unknown]
  - Electrocardiogram abnormal [Unknown]
  - Chest pain [Unknown]
